FAERS Safety Report 9332698 (Version 2)
Quarter: 2013Q4

REPORT INFORMATION
  Report Type: Spontaneous
  Country: FR (occurrence: FR)
  Receive Date: 20130606
  Receipt Date: 20131025
  Transmission Date: 20140711
  Serious: Yes (Hospitalization)
  Sender: FDA-Public Use
  Company Number: PHHY2013FR057079

PATIENT
  Age: 74 Year
  Sex: Male

DRUGS (6)
  1. GLIVEC [Suspect]
     Indication: GASTROINTESTINAL STROMAL TUMOUR
     Dosage: 400 MG, QD
     Route: 048
     Dates: start: 201002
  2. ISOPTINE [Concomitant]
     Dosage: 240 MG, UNK
     Route: 048
  3. CRESTOR [Concomitant]
     Dosage: 10 MG, UNK
     Route: 048
  4. LANZOR [Concomitant]
     Dosage: 30 MG, UNK
     Route: 048
  5. KARDEGIC [Concomitant]
     Dosage: 75 MG, UNK
     Route: 048
  6. ERYTHROPOETIN [Concomitant]
     Dosage: UNK UKN, UNK
     Dates: end: 201302

REACTIONS (2)
  - Gastrointestinal angiodysplasia haemorrhagic [Unknown]
  - Anaemia [Unknown]
